FAERS Safety Report 25582014 (Version 1)
Quarter: 2025Q3

REPORT INFORMATION
  Report Type: Spontaneous
  Country: US (occurrence: US)
  Receive Date: 20250719
  Receipt Date: 20250719
  Transmission Date: 20251020
  Serious: Yes (Other)
  Sender: AMGEN
  Company Number: US-PFIZER INC-PV202500083370

PATIENT
  Age: 47 Year
  Sex: Female

DRUGS (1)
  1. ETANERCEPT [Suspect]
     Active Substance: ETANERCEPT
     Indication: Rheumatoid arthritis
     Route: 065

REACTIONS (9)
  - Pulmonary granuloma [Unknown]
  - Pulmonary mass [Recovered/Resolved]
  - Hilar lymphadenopathy [Recovered/Resolved]
  - Lymphadenopathy mediastinal [Recovered/Resolved]
  - Interstitial lung disease [Unknown]
  - Diabetes mellitus [Unknown]
  - Hepatitis B [Unknown]
  - Hypothyroidism [Unknown]
  - Cough variant asthma [Unknown]
